FAERS Safety Report 5780696-2 (Version None)
Quarter: 2008Q2

REPORT INFORMATION
  Report Type: 
  Country: None (occurrence: None)
  Receive Date: 20080620
  Receipt Date: 20080610
  Transmission Date: 20081010
  Serious: Yes (Disabling, Other)
  Sender: FDA-Public Use
  Company Number: US-PFIZER INC-2007107740

PATIENT
  Sex: Male
  Weight: 103.9 kg

DRUGS (5)
  1. CHANTIX [Suspect]
     Indication: SMOKING CESSATION THERAPY
     Dates: start: 20070805, end: 20070817
  2. ADVAIR DISKUS 100/50 [Concomitant]
     Dosage: TEXT:ONE INHALATION TWICE DAILY
     Route: 055
  3. FLONASE [Concomitant]
     Dosage: TEXT:2 SPRAYS DAILY
  4. NORVASC [Concomitant]
  5. ZANTAC [Concomitant]

REACTIONS (15)
  - ANXIETY [None]
  - ARTHRALGIA [None]
  - ASTHENIA [None]
  - BLINDNESS UNILATERAL [None]
  - CHEST PAIN [None]
  - FATIGUE [None]
  - HIGH DENSITY LIPOPROTEIN DECREASED [None]
  - HYPERSOMNIA [None]
  - HYPERTENSION [None]
  - LOW DENSITY LIPOPROTEIN INCREASED [None]
  - OPTIC ISCHAEMIC NEUROPATHY [None]
  - PAPILLOEDEMA [None]
  - PUPILLARY REFLEX IMPAIRED [None]
  - VISUAL ACUITY REDUCED [None]
  - VISUAL FIELD DEFECT [None]
